FAERS Safety Report 4876191-5 (Version None)
Quarter: 2006Q1

REPORT INFORMATION
  Report Type: 
  Country: None (occurrence: None)
  Receive Date: 20060110
  Receipt Date: 20051230
  Transmission Date: 20060701
  Serious: Yes (Hospitalization, Other)
  Sender: FDA-Public Use
  Company Number: PHRM2005FR03412

PATIENT
  Age: 83 Year
  Sex: Female
  Weight: 55 kg

DRUGS (9)
  1. PRAXILENE [Concomitant]
     Dosage: 200 MG, BID
     Route: 048
  2. LEXOMIL [Concomitant]
     Dosage: 1.5 MG, QD
     Route: 048
  3. ACETAMINOPHEN [Concomitant]
     Dosage: 500 MG, UNK
     Route: 048
  4. TEGRETOL [Suspect]
     Indication: NEURALGIA
     Dosage: 1000 MG/DAY
     Route: 048
     Dates: end: 20051208
  5. COTAREG [Concomitant]
     Indication: ESSENTIAL HYPERTENSION
     Dosage: 1 DF, QD
     Route: 048
  6. PREVISCAN [Concomitant]
     Indication: CEREBRAL ISCHAEMIA
     Dosage: 15 MG ON EVEN DAYS, 20 MG ON ODD DAYS
     Route: 048
  7. LEVOTHYROXINE SODIUM [Concomitant]
     Indication: HYPOTHYROIDISM
     Dosage: 150 UG, QD
     Route: 048
  8. CELECTOL [Concomitant]
     Indication: ESSENTIAL HYPERTENSION
     Dosage: 100 MG/DAY
     Route: 048
  9. DEROXAT [Concomitant]
     Dosage: 20 MG/DAY
     Route: 048

REACTIONS (11)
  - ANTICONVULSANT DRUG LEVEL INCREASED [None]
  - AREFLEXIA [None]
  - BUNDLE BRANCH BLOCK RIGHT [None]
  - DEPRESSED LEVEL OF CONSCIOUSNESS [None]
  - DIZZINESS [None]
  - DYSKINESIA [None]
  - HYPERTONIA [None]
  - MENINGIOMA [None]
  - SOMNOLENCE [None]
  - VISUAL DISTURBANCE [None]
  - VOMITING [None]
